FAERS Safety Report 6712278-X (Version None)
Quarter: 2010Q2

REPORT INFORMATION
  Report Type: 
  Country: None (occurrence: None)
  Receive Date: 20100505
  Receipt Date: 20100422
  Transmission Date: 20101027
  Serious: Yes (Hospitalization, Other)
  Sender: FDA-Public Use
  Company Number: US-ELI_LILLY_AND_COMPANY-US201004007849

PATIENT
  Sex: Female

DRUGS (10)
  1. ZYPREXA [Suspect]
     Indication: BIPOLAR DISORDER
     Dosage: 10 MG, EACH EVENING
     Dates: start: 20030101, end: 20100101
  2. ZYPREXA [Suspect]
     Dosage: 10 MG, 2/D
     Dates: start: 20100101
  3. NORCO [Concomitant]
  4. NEURONTIN [Concomitant]
  5. FLEXERIL [Concomitant]
  6. TRILEPTAL [Concomitant]
  7. AMBIEN [Concomitant]
  8. LOTREL [Concomitant]
  9. MULTI-VITAMIN [Concomitant]
  10. ATIVAN [Concomitant]

REACTIONS (8)
  - ACTIVITIES OF DAILY LIVING IMPAIRED [None]
  - CRYING [None]
  - DRUG DEPENDENCE [None]
  - FALL [None]
  - MALAISE [None]
  - UPPER LIMB FRACTURE [None]
  - VOMITING [None]
  - WITHDRAWAL SYNDROME [None]
